FAERS Safety Report 24212970 (Version 2)
Quarter: 2024Q4

REPORT INFORMATION
  Report Type: Report from Study
  Country: BR (occurrence: BR)
  Receive Date: 20240815
  Receipt Date: 20241015
  Transmission Date: 20250115
  Serious: Yes (Other)
  Sender: TAKEDA
  Company Number: BR-TAKEDA-2024TUS081332

PATIENT
  Sex: Male
  Weight: 23 kg

DRUGS (1)
  1. ANTI-INHIBITOR COAGULANT COMPLEX [Suspect]
     Active Substance: ANTI-INHIBITOR COAGULANT COMPLEX
     Indication: Prophylaxis
     Dosage: UNK
     Route: 065

REACTIONS (5)
  - Traumatic haemorrhage [Unknown]
  - Haemorrhage [Recovered/Resolved]
  - Joint injury [Recovered/Resolved]
  - Limb injury [Recovered/Resolved]
  - Product use issue [Unknown]
